FAERS Safety Report 21769769 (Version 1)
Quarter: 2022Q4

REPORT INFORMATION
  Report Type: Spontaneous
  Country: GB (occurrence: GB)
  Receive Date: 20221223
  Receipt Date: 20221223
  Transmission Date: 20230113
  Serious: Yes (Other)
  Sender: FDA-Public Use
  Company Number: GB-MHRA-TPP30680977C5318097YC1670261543644

PATIENT
  Age: 92 Year
  Sex: Female
  Weight: 64 kg

DRUGS (10)
  1. CODEINE [Suspect]
     Active Substance: CODEINE
     Indication: Product used for unknown indication
     Dosage: ONE OR TWO TABLETS
     Route: 065
     Dates: start: 20221107
  2. ADCAL [Concomitant]
     Indication: Product used for unknown indication
     Dosage: 1 DOSAGE FORM, DAILY
     Route: 065
     Dates: start: 20220719
  3. ALENDRONIC ACID [Concomitant]
     Active Substance: ALENDRONIC ACID
     Indication: Osteoporosis
     Dosage: ON MONDAY
     Route: 065
     Dates: start: 20221028
  4. BUNOV [Concomitant]
     Indication: Product used for unknown indication
     Dosage: PATCH TO BE APPLIED TO NON-IRRITATE...
     Route: 065
     Dates: start: 20221028, end: 20221125
  5. CO-AMILOFRUSE [Concomitant]
     Active Substance: AMILORIDE\FUROSEMIDE
     Indication: Product used for unknown indication
     Dosage: EACH MORNING
     Route: 065
     Dates: start: 20220719
  6. DONEPEZIL HYDROCHLORIDE [Concomitant]
     Active Substance: DONEPEZIL HYDROCHLORIDE
     Indication: Product used for unknown indication
     Dosage: IN NOMAD
     Route: 065
     Dates: start: 20220524
  7. FLUCLOXACILLIN [Concomitant]
     Active Substance: FLUCLOXACILLIN
     Indication: Product used for unknown indication
     Dosage: 1 DOSAGE FORM, DAILY
     Route: 065
     Dates: start: 20221011, end: 20221018
  8. LACTULOSE [Concomitant]
     Active Substance: LACTULOSE
     Indication: Product used for unknown indication
     Dosage: 15 MILLILITER, DAILY
     Route: 065
     Dates: start: 20220907, end: 20220917
  9. ACETAMINOPHEN [Concomitant]
     Active Substance: ACETAMINOPHEN
     Indication: Product used for unknown indication
     Dosage: TAKE TWO TABLETS IN THE MORNING , AT LUNCHTIME ...
     Route: 065
     Dates: start: 20220719
  10. TRIMETHOPRIM [Concomitant]
     Active Substance: TRIMETHOPRIM
     Indication: Product used for unknown indication
     Dosage: 1 DOSAGE FORM, DAILY
     Route: 065
     Dates: start: 20220912, end: 20220915

REACTIONS (2)
  - Coordination abnormal [Unknown]
  - Miosis [Unknown]
